FAERS Safety Report 9893568 (Version 1)
Quarter: 2014Q1

REPORT INFORMATION
  Report Type: Report from Study
  Country: US (occurrence: US)
  Receive Date: 20140213
  Receipt Date: 20140213
  Transmission Date: 20141002
  Serious: Yes (Hospitalization)
  Sender: FDA-Public Use
  Company Number: PHEH2014US002690

PATIENT
  Age: 63 Year
  Sex: Male

DRUGS (1)
  1. TASIGNA [Suspect]
     Dosage: 300 MG, Q12H
     Route: 048
     Dates: start: 20130515

REACTIONS (5)
  - Staphylococcal infection [Recovering/Resolving]
  - Diabetic foot [Recovering/Resolving]
  - Neuropathy peripheral [Recovering/Resolving]
  - Lipase abnormal [Unknown]
  - Dizziness [Unknown]
